FAERS Safety Report 17919270 (Version 2)
Quarter: 2021Q3

REPORT INFORMATION
  Report Type: Report from Study
  Country: None (occurrence: DE)
  Receive Date: 20200620
  Receipt Date: 20210902
  Transmission Date: 20211014
  Serious: No
  Sender: FDA-Public Use
  Company Number: DE-ABBVIE-20K-062-3451369-00

PATIENT
  Sex: Female

DRUGS (11)
  1. HUMIRA [Suspect]
     Active Substance: ADALIMUMAB
     Indication: ANKYLOSING SPONDYLITIS
     Route: 058
     Dates: start: 20180302, end: 2018
  2. HYRIMOZ [Suspect]
     Active Substance: ADALIMUMAB-ADAZ
     Indication: PRODUCT USED FOR UNKNOWN INDICATION
     Route: 065
  3. HUMIRA [Suspect]
     Active Substance: ADALIMUMAB
     Indication: AXIAL SPONDYLOARTHRITIS
     Route: 058
     Dates: start: 201910
  4. FORMOTEROL [Concomitant]
     Active Substance: FORMOTEROL
     Indication: ASTHMA
     Route: 055
     Dates: start: 2002, end: 202107
  5. PANTOPRAZOL [Concomitant]
     Active Substance: PANTOPRAZOLE SODIUM
     Indication: PROPHYLAXIS
     Dates: start: 2015
  6. PANTOPRAZOL [Concomitant]
     Active Substance: PANTOPRAZOLE SODIUM
     Indication: PRODUCT USED FOR UNKNOWN INDICATION
  7. LEVOCETIRIZIN [Concomitant]
     Active Substance: LEVOCETIRIZINE DIHYDROCHLORIDE
     Indication: PRODUCT USED FOR UNKNOWN INDICATION
     Route: 048
     Dates: start: 2015
  8. HULIO [Suspect]
     Active Substance: ADALIMUMAB-FKJP
     Indication: PRODUCT USED FOR UNKNOWN INDICATION
     Route: 065
  9. NOVOPULMON [Concomitant]
     Active Substance: BUDESONIDE
     Indication: ASTHMA
     Route: 055
     Dates: start: 2002, end: 202107
  10. ETORICOXIB. [Concomitant]
     Active Substance: ETORICOXIB
     Indication: ANTIINFLAMMATORY THERAPY
     Route: 048
     Dates: start: 2019
  11. FOSTER [Concomitant]
     Active Substance: BECLOMETHASONE\FORMOTEROL
     Indication: ASTHMA
     Route: 055
     Dates: start: 2021

REACTIONS (11)
  - Dizziness [Recovered/Resolved]
  - Food intolerance [Recovered/Resolved]
  - Gait inability [Unknown]
  - Drug ineffective [Unknown]
  - Oesophagitis [Recovering/Resolving]
  - Musculoskeletal stiffness [Recovered/Resolved]
  - Asthma [Recovered/Resolved]
  - Chronic gastritis [Recovered/Resolved]
  - Therapeutic product effect decreased [Not Recovered/Not Resolved]
  - Gastrooesophageal reflux disease [Recovered/Resolved]
  - Asthma [Not Recovered/Not Resolved]

NARRATIVE: CASE EVENT DATE: 2018
